FAERS Safety Report 9369247 (Version 1)
Quarter: 2013Q2

REPORT INFORMATION
  Report Type: Spontaneous
  Country: JP (occurrence: JP)
  Receive Date: 20130626
  Receipt Date: 20130626
  Transmission Date: 20140414
  Serious: Yes (Hospitalization)
  Sender: FDA-Public Use
  Company Number: JP-B.I. PHARMACEUTICALS,INC./RIDGEFIELD-2013-BI-17652NB

PATIENT
  Age: 80 Year
  Sex: Male

DRUGS (5)
  1. PRAZAXA [Suspect]
     Indication: ATRIAL FIBRILLATION
     Dosage: 220 MG
     Route: 048
     Dates: end: 20130615
  2. PLETAAL [Concomitant]
     Dosage: 100 MG
     Route: 048
     Dates: end: 20130614
  3. BLOPRESS [Concomitant]
     Dosage: 4 MG
     Route: 048
  4. AMLODIN [Concomitant]
     Dosage: 2.5 MG
     Route: 048
  5. LAC-B [Concomitant]
     Dosage: 2 G
     Route: 048

REACTIONS (1)
  - Rectal polyp [Unknown]
